FAERS Safety Report 20591552 (Version 1)
Quarter: 2022Q1

REPORT INFORMATION
  Report Type: Report from Study
  Country: US (occurrence: US)
  Receive Date: 20220314
  Receipt Date: 20220314
  Transmission Date: 20220423
  Serious: No
  Sender: FDA-Public Use
  Company Number: US-ABBVIE-22P-163-4311634-00

PATIENT
  Age: 41 Year
  Sex: Female
  Weight: 76.2 kg

DRUGS (8)
  1. ELAGOLIX SODIUM\ESTRADIOL\NORETHINDRONE [Suspect]
     Active Substance: ELAGOLIX SODIUM\ESTRADIOL\NORETHINDRONE
     Indication: Uterine leiomyoma
     Dosage: ELAGOLIX 300MG/ESTRADIOL/NORETHINDRONE 1.0MG /0.5MG
     Route: 048
     Dates: start: 20190925, end: 20200826
  2. ELAGOLIX SODIUM\ESTRADIOL\NORETHINDRONE [Suspect]
     Active Substance: ELAGOLIX SODIUM\ESTRADIOL\NORETHINDRONE
     Indication: Uterine leiomyoma
     Dosage: ELAGOLIX 300MG/ESTRADIOL/NORETHINDRONE 1.0MG /0.5MG
     Route: 048
     Dates: start: 20200826, end: 20220207
  3. ELAGOLIX [Suspect]
     Active Substance: ELAGOLIX
     Indication: Uterine leiomyoma
     Dosage: PM DOSE
     Route: 048
     Dates: start: 20200826, end: 20220207
  4. MOTRIN [Concomitant]
     Active Substance: IBUPROFEN
     Indication: Pelvic pain
     Route: 048
     Dates: start: 2012
  5. VITAMIN D [Concomitant]
     Active Substance: VITAMIN D NOS
     Indication: Routine health maintenance
     Route: 048
     Dates: start: 20190422
  6. VITAMINS [Concomitant]
     Active Substance: VITAMINS
     Indication: Routine health maintenance
     Route: 048
     Dates: start: 20190422
  7. HYDROCHLOROTHIAZIDE [Concomitant]
     Active Substance: HYDROCHLOROTHIAZIDE
     Indication: Hypertension
     Route: 048
     Dates: start: 2007
  8. LEVOTHYROXINE [Concomitant]
     Active Substance: LEVOTHYROXINE
     Indication: Autoimmune thyroiditis
     Route: 048
     Dates: start: 20200708

REACTIONS (1)
  - Bone density decreased [Not Recovered/Not Resolved]

NARRATIVE: CASE EVENT DATE: 20220112
